FAERS Safety Report 6695823-2 (Version None)
Quarter: 2010Q2

REPORT INFORMATION
  Report Type: 
  Country: None (occurrence: None)
  Receive Date: 20100423
  Receipt Date: 20100423
  Transmission Date: 20101027
  Serious: Yes (Life-Threatening, Hospitalization)
  Sender: FDA-Public Use
  Company Number: None

PATIENT
  Age: 72 Year
  Sex: Female
  Weight: 41.7309 kg

DRUGS (2)
  1. LIPITOR [Suspect]
     Dosage: 40 DAILY PO
     Route: 048
  2. COLCHICINE 0.6 N/A [Suspect]
     Dosage: 0.6 DAILY PO
     Route: 048

REACTIONS (5)
  - BLOOD CREATININE INCREASED [None]
  - BODY TEMPERATURE DECREASED [None]
  - DECREASED APPETITE [None]
  - GAIT DISTURBANCE [None]
  - RHABDOMYOLYSIS [None]
